FAERS Safety Report 12844247 (Version 1)
Quarter: 2016Q4

REPORT INFORMATION
  Report Type: Spontaneous
  Country: US (occurrence: US)
  Receive Date: 20161013
  Receipt Date: 20161013
  Transmission Date: 20170207
  Serious: No
  Sender: FDA-Public Use
  Company Number: US-ROCHE-1763445

PATIENT
  Age: 57 Year
  Sex: Female

DRUGS (4)
  1. MORPHINE SULFATE. [Concomitant]
     Active Substance: MORPHINE SULFATE
  2. TEMAZEPAM. [Concomitant]
     Active Substance: TEMAZEPAM
  3. ATENOLOL + CHLORTHALIDONE [Concomitant]
  4. ZELBORAF [Suspect]
     Active Substance: VEMURAFENIB
     Indication: MALIGNANT MELANOMA
     Dosage: 4 TABLETS, STRENGTH:240MG
     Route: 048

REACTIONS (5)
  - Rash [Unknown]
  - Nausea [Recovering/Resolving]
  - Pruritus [Unknown]
  - Constipation [Unknown]
  - Acne [Unknown]
